FAERS Safety Report 7286792-5 (Version None)
Quarter: 2011Q1

REPORT INFORMATION
  Report Type: 
  Country: None (occurrence: None)
  Receive Date: 20110210
  Receipt Date: 20110129
  Transmission Date: 20110831
  Serious: Yes (Other)
  Sender: FDA-Public Use
  Company Number: GB-GENENTECH-313111

PATIENT
  Age: 66 Year
  Sex: Female

DRUGS (1)
  1. XOLAIR [Suspect]
     Indication: ASTHMA
     Dosage: 525 MG, UNK
     Route: 058
     Dates: start: 20100408, end: 20100408

REACTIONS (5)
  - DYSPHAGIA [None]
  - TONGUE DISORDER [None]
  - THIRST [None]
  - DRY MOUTH [None]
  - CONFUSIONAL STATE [None]
